FAERS Safety Report 23230255 (Version 3)
Quarter: 2023Q4

REPORT INFORMATION
  Report Type: Report from Study
  Country: CA (occurrence: CA)
  Receive Date: 20231127
  Receipt Date: 20231214
  Transmission Date: 20240110
  Serious: Yes (Other)
  Sender: FDA-Public Use
  Company Number: CA-TAKEDA-2023TUS073143

PATIENT
  Age: 88 Year
  Sex: Female

DRUGS (12)
  1. VEDOLIZUMAB [Suspect]
     Active Substance: VEDOLIZUMAB
     Indication: Crohn^s disease
     Dosage: 300 MILLIGRAM
     Route: 042
     Dates: start: 20230523
  2. VEDOLIZUMAB [Suspect]
     Active Substance: VEDOLIZUMAB
     Dosage: 300 MILLIGRAM, Q4WEEKS
     Route: 042
     Dates: start: 20231212
  3. PREDNISONE [Concomitant]
     Active Substance: PREDNISONE
     Dosage: UNK
     Dates: start: 20230407
  4. Lomax [Concomitant]
     Dosage: UNK
     Dates: start: 20230407
  5. AMLODIPINE [Concomitant]
     Active Substance: AMLODIPINE BESYLATE
     Dosage: UNK
  6. BISOPROLOL FUMARATE [Concomitant]
     Active Substance: BISOPROLOL FUMARATE
     Dosage: UNK
  7. MIRABEGRON [Concomitant]
     Active Substance: MIRABEGRON
     Dosage: UNK
  8. LANSOPRAZOLE [Concomitant]
     Active Substance: LANSOPRAZOLE
     Dosage: UNK
  9. VITAMIN D [Concomitant]
     Active Substance: VITAMIN D NOS
     Dosage: UNK
  10. Cortiment [Concomitant]
     Dosage: 9 MILLIGRAM, QD
     Route: 048
  11. HYDROMORPHONE [Concomitant]
     Active Substance: HYDROMORPHONE
     Indication: Spinal fracture
     Dosage: UNK
  12. CENTRUM VITAMINTS [Concomitant]
     Dosage: UNK

REACTIONS (4)
  - Rectal haemorrhage [Unknown]
  - Spinal fracture [Unknown]
  - Anal incontinence [Unknown]
  - Off label use [Unknown]

NARRATIVE: CASE EVENT DATE: 20231212
